FAERS Safety Report 5283328-5 (Version None)
Quarter: 2007Q1

REPORT INFORMATION
  Report Type: 
  Country: None (occurrence: None)
  Receive Date: 20061226
  Receipt Date: 20061012
  Transmission Date: 20070707
  Serious: No
  Sender: FDA-Public Use
  Company Number: PHEH2006US12188

PATIENT
  Age: 85 Year
  Sex: Female

DRUGS (4)
  1. ENABLEX [Suspect]
     Indication: CYSTITIS
     Dosage: 7.5 MG, QD
     Dates: start: 20060801, end: 20060801
  2. ENABLEX [Suspect]
     Indication: CYSTITIS
     Dosage: 7.5 MG, QD
     Dates: start: 20061011
  3. METOPROLOL TARTRATE [Concomitant]
  4. LIPITOR /NET/  (ATORVASTATIN CALCIUM) [Concomitant]

REACTIONS (4)
  - CONSTIPATION [None]
  - DRUG INEFFECTIVE [None]
  - DRY MOUTH [None]
  - DYSGEUSIA [None]
